FAERS Safety Report 17269471 (Version 1)
Quarter: 2020Q1

REPORT INFORMATION
  Report Type: Spontaneous
  Country: US (occurrence: US)
  Receive Date: 20200114
  Receipt Date: 20200114
  Transmission Date: 20200409
  Serious: Yes (Other)
  Sender: FDA-Public Use
  Company Number: US-FRESENIUS MEDICAL CARE RENAL THERAPIES GROUP-FMC-2001-000043

PATIENT
  Sex: Male
  Weight: 88 kg

DRUGS (15)
  1. DELFLEX WITH DEXTROSE 4.25% LOW MAGNESIUM LOW CALCIUM [Suspect]
     Active Substance: CALCIUM CHLORIDE\DEXTROSE\MAGNESIUM CHLORIDE\SODIUM CHLORIDE\SODIUM LACTATE
     Indication: END STAGE RENAL DISEASE
     Dosage: FILL VOLUME = 1800 ML, 5 EXCHANGES, NO LAST FILL, NO DAYTIME EXCHANGE, TOTAL TIME = 8.5 HOURS.
     Route: 033
     Dates: start: 20190402
  2. CALCITRIOL. [Concomitant]
     Active Substance: CALCITRIOL
  3. LISINOPRIL. [Concomitant]
     Active Substance: LISINOPRIL
  4. BUMEX [Concomitant]
     Active Substance: BUMETANIDE
  5. DELFLEX WITH DEXTROSE 2.5% LOW MAGNESIUM LOW CALCIUM [Suspect]
     Active Substance: CALCIUM CHLORIDE\DEXTROSE\MAGNESIUM CHLORIDE\SODIUM CHLORIDE\SODIUM LACTATE
     Indication: END STAGE RENAL DISEASE
     Dosage: FILL VOLUME = 1800 ML, 5 EXCHANGES, NO LAST FILL, NO DAYTIME EXCHANGE, TOTAL TIME = 8.5 HOURS.
     Route: 033
     Dates: start: 20190402
  6. AMLODIPINE [Concomitant]
     Active Substance: AMLODIPINE BESYLATE
  7. ONDANSETRON HYDROCHLORIDE. [Concomitant]
     Active Substance: ONDANSETRON HYDROCHLORIDE
  8. ZOFRAN [Concomitant]
     Active Substance: ONDANSETRON HYDROCHLORIDE
  9. POTASSIUM CHLORIDE. [Concomitant]
     Active Substance: POTASSIUM CHLORIDE
  10. ZOLPIDEM [Concomitant]
     Active Substance: ZOLPIDEM TARTRATE
  11. ATORVASTATIN [Concomitant]
     Active Substance: ATORVASTATIN
  12. GENTAMYCIN CREAM [Concomitant]
     Active Substance: GENTAMICIN
  13. LYRICA [Concomitant]
     Active Substance: PREGABALIN
  14. DELFLEX WITH DEXTROSE 1.5% LOW MAGNESIUM LOW CALCIUM [Suspect]
     Active Substance: CALCIUM CHLORIDE\DEXTROSE\MAGNESIUM CHLORIDE\SODIUM CHLORIDE\SODIUM LACTATE
     Indication: END STAGE RENAL DISEASE
     Dosage: FILL VOLUME = 1800 ML, 5 EXCHANGES, NO LAST FILL, NO DAYTIME EXCHANGE, TOTAL TIME = 8.5 HOURS.
     Route: 033
     Dates: start: 20190402
  15. LABETALOL [Concomitant]
     Active Substance: LABETALOL\LABETALOL HYDROCHLORIDE

REACTIONS (1)
  - Peritonitis [Recovering/Resolving]
